FAERS Safety Report 22394459 (Version 1)
Quarter: 2023Q2

REPORT INFORMATION
  Report Type: Spontaneous
  Country: US (occurrence: None)
  Receive Date: 20230531
  Receipt Date: 20230531
  Transmission Date: 20230722
  Serious: No
  Sender: FDA-Public Use
  Company Number: None

PATIENT
  Sex: Female

DRUGS (1)
  1. ICATIBANT ACETATE [Suspect]
     Active Substance: ICATIBANT ACETATE

REACTIONS (7)
  - Lip swelling [None]
  - Swollen tongue [None]
  - Abdominal distension [None]
  - Pharyngeal swelling [None]
  - Condition aggravated [None]
  - Eye swelling [None]
  - Swelling [None]

NARRATIVE: CASE EVENT DATE: 20230430
